FAERS Safety Report 7597696-2 (Version None)
Quarter: 2011Q3

REPORT INFORMATION
  Report Type: 
  Country: None (occurrence: None)
  Receive Date: 20110708
  Receipt Date: 20110211
  Transmission Date: 20111222
  Serious: Yes (Hospitalization)
  Sender: FDA-Public Use
  Company Number: US-GLAXOSMITHKLINE-A0877692A

PATIENT
  Age: 55 Year
  Sex: Female

DRUGS (2)
  1. NO CONCURRENT MEDICATIONS [Concomitant]
  2. LOVAZA [Suspect]
     Indication: BLOOD CHOLESTEROL INCREASED
     Dosage: 1G FOUR TIMES PER DAY
     Route: 048
     Dates: start: 20091230, end: 20100726

REACTIONS (23)
  - ARRHYTHMIA [None]
  - DYSPNOEA [None]
  - NASAL CONGESTION [None]
  - CHEST DISCOMFORT [None]
  - OROPHARYNGEAL PAIN [None]
  - APHONIA [None]
  - DIZZINESS [None]
  - HEADACHE [None]
  - CARDIAC DISORDER [None]
  - ABDOMINAL DISTENSION [None]
  - PALPITATIONS [None]
  - LARYNGITIS [None]
  - HOSPITALISATION [None]
  - TACHYCARDIA [None]
  - RHINITIS [None]
  - ASTHENIA [None]
  - HYPERHIDROSIS [None]
  - OXYGEN SATURATION DECREASED [None]
  - EPISTAXIS [None]
  - MIGRAINE [None]
  - COUGH [None]
  - PHARYNGITIS [None]
  - DRY MOUTH [None]
